FAERS Safety Report 6852808-0 (Version None)
Quarter: 2010Q3

REPORT INFORMATION
  Report Type: 
  Country: None (occurrence: None)
  Receive Date: 20100717
  Receipt Date: 20071126
  Transmission Date: 20110219
  Serious: No
  Sender: FDA-Public Use
  Company Number: US-PFIZER INC-2007100400

PATIENT
  Sex: Female
  Weight: 47.7 kg

DRUGS (4)
  1. CHANTIX [Suspect]
     Indication: SMOKING CESSATION THERAPY
     Dosage: EVERY DAY
     Route: 048
     Dates: start: 20071119
  2. HYDROCODONE [Concomitant]
     Indication: PAIN
     Route: 048
  3. XANAX [Concomitant]
     Indication: ANXIETY
     Route: 048
  4. PROGESIC [Concomitant]
     Route: 048

REACTIONS (2)
  - FATIGUE [None]
  - NAUSEA [None]
